FAERS Safety Report 25852843 (Version 1)
Quarter: 2025Q3

REPORT INFORMATION
  Report Type: Spontaneous
  Country: JP (occurrence: JP)
  Receive Date: 20250926
  Receipt Date: 20250926
  Transmission Date: 20251021
  Serious: Yes (Disabling, Other)
  Sender: PFIZER
  Company Number: JP-PFIZER INC-PV202500114618

PATIENT
  Age: 50 Year
  Sex: Female

DRUGS (1)
  1. SOLU-MEDROL [Suspect]
     Active Substance: METHYLPREDNISOLONE SODIUM SUCCINATE
     Dates: start: 201601, end: 201606

REACTIONS (2)
  - Osteonecrosis [Unknown]
  - Somatic dysfunction [Unknown]
